FAERS Safety Report 9682952 (Version 1)
Quarter: 2013Q4

REPORT INFORMATION
  Report Type: Spontaneous
  Country: US (occurrence: US)
  Receive Date: 20131112
  Receipt Date: 20131112
  Transmission Date: 20140711
  Serious: No
  Sender: FDA-Public Use
  Company Number: US-009507513-1311USA001358

PATIENT
  Sex: Male

DRUGS (1)
  1. PEGINTRON [Suspect]
     Dosage: 0.5 ML, QW
     Route: 058
     Dates: start: 201309

REACTIONS (2)
  - Injury associated with device [Unknown]
  - Product quality issue [Unknown]
